FAERS Safety Report 5704011-5 (Version None)
Quarter: 2008Q2

REPORT INFORMATION
  Report Type: 
  Country: None (occurrence: None)
  Receive Date: 20080414
  Receipt Date: 20080401
  Transmission Date: 20081010
  Serious: Yes (Death, Life-Threatening, Hospitalization, Other)
  Sender: FDA-Public Use
  Company Number: AU-NOVOPROD-254412

PATIENT
  Age: 10 Year
  Sex: Female
  Weight: 27 kg

DRUGS (3)
  1. NORDITROPIN [Suspect]
     Indication: HYPOPITUITARISM
     Dosage: .67 MG, QD
     Route: 058
     Dates: start: 20050516, end: 20060524
  2. LEVOTHYROXINE SODIUM [Concomitant]
     Dosage: 75 MG, QD
     Route: 048
     Dates: start: 20031028
  3. LUCRIN [Concomitant]
     Dosage: 7.5 MG EVERY 3 MONTH
     Route: 030
     Dates: start: 20050321

REACTIONS (2)
  - DISEASE RECURRENCE [None]
  - MEDULLOBLASTOMA [None]
